FAERS Safety Report 9759850 (Version 2)
Quarter: 2013Q4

REPORT INFORMATION
  Report Type: Report from Study
  Country: JP (occurrence: JP)
  Receive Date: 20131216
  Receipt Date: 20131220
  Transmission Date: 20140711
  Serious: Yes (Hospitalization)
  Sender: FDA-Public Use
  Company Number: JP-NAPPMUNDI-GBR-2013-0016585

PATIENT
  Age: 64 Year
  Sex: Female

DRUGS (11)
  1. OXYCODONE HCL PR TABLET [Suspect]
     Indication: BACK PAIN
     Dosage: 5 MG, BID
     Route: 048
     Dates: start: 20131114, end: 20131129
  2. OXYCODONE HCL PR TABLET [Suspect]
     Dosage: 5 MG, BID
     Route: 048
     Dates: start: 20131030, end: 20131113
  3. LIPITOR [Concomitant]
     Indication: HYPERLIPIDAEMIA
     Dosage: 5 MG, DAILY
     Route: 048
  4. JANUVIA [Concomitant]
     Indication: DIABETES MELLITUS
     Dosage: 50 MG, DAILY
     Route: 048
  5. GLUFAST [Concomitant]
     Indication: DIABETES MELLITUS
     Dosage: 30 MG, DAILY
     Route: 048
  6. VOGLIBOSE [Concomitant]
     Indication: DIABETES MELLITUS
     Dosage: 0.9 MG, DAILY
     Route: 048
  7. VERAPAMIL HYDROCHLORIDE [Concomitant]
     Indication: ARRHYTHMIA
     Dosage: 120 MG, DAILY
     Route: 048
     Dates: start: 2008
  8. MEXILETINE HYDROCHLORIDE [Concomitant]
     Indication: ARRHYTHMIA
     Dosage: 200 MG, DAILY
     Route: 048
     Dates: start: 2008
  9. KIPRES [Concomitant]
     Indication: ASTHMA
     Dosage: 10 MG, DAILY
     Route: 048
     Dates: start: 20110405
  10. ADOAIR [Concomitant]
     Indication: ASTHMA
     Dosage: 2 DF, DAILY
     Dates: start: 20110408
  11. CALONAL [Concomitant]
     Indication: NEURALGIA
     Dosage: 400 MG, DAILY
     Route: 048

REACTIONS (1)
  - Cataract [Recovered/Resolved]
